FAERS Safety Report 4369912-1 (Version None)
Quarter: 2004Q2

REPORT INFORMATION
  Report Type: 
  Country: None (occurrence: None)
  Receive Date: 20040527
  Receipt Date: 20040513
  Transmission Date: 20050107
  Serious: Yes (Other)
  Sender: FDA-Public Use
  Company Number: FR_040303805

PATIENT
  Age: 69 Year
  Sex: Female
  Weight: 71 kg

DRUGS (4)
  1. EVISTA [Suspect]
     Indication: OSTEOPOROSIS
     Dosage: 60 MG/1 DAY
     Dates: start: 20030501, end: 20030601
  2. FIXICAL (CALCIUM CARBONATE) [Concomitant]
  3. LOPRESSOR [Concomitant]
  4. INIPOMP (PANTOPRAZOLE) [Concomitant]

REACTIONS (1)
  - PHLEBITIS [None]
